FAERS Safety Report 11269264 (Version 1)
Quarter: 2015Q3

REPORT INFORMATION
  Report Type: Spontaneous
  Country: US (occurrence: US)
  Receive Date: 20150714
  Receipt Date: 20150714
  Transmission Date: 20151125
  Serious: No
  Sender: FDA-Public Use
  Company Number: PHEH2015US007512

PATIENT
  Age: 69 Year
  Sex: Female
  Weight: 75 kg

DRUGS (10)
  1. VALSARTAN. [Suspect]
     Active Substance: VALSARTAN
     Indication: HYPERTENSION
     Route: 065
  2. CELEBREX [Suspect]
     Active Substance: CELECOXIB
     Indication: AORTIC STENOSIS
     Dosage: 100 MG, BID
     Route: 048
     Dates: start: 2013
  3. CELEBREX [Suspect]
     Active Substance: CELECOXIB
     Indication: SCOLIOSIS
  4. CELEBREX [Suspect]
     Active Substance: CELECOXIB
     Indication: ARTHRITIS
  5. CELEBREX [Suspect]
     Active Substance: CELECOXIB
     Indication: OSTEOARTHRITIS
  6. FENTANYL. [Concomitant]
     Active Substance: FENTANYL
     Indication: PRODUCT USED FOR UNKNOWN INDICATION
     Dosage: 25 MG, ONCE EVERY 3 DAYS
     Route: 065
  7. CELEBREX [Suspect]
     Active Substance: CELECOXIB
     Indication: FIBROMYALGIA
  8. SAVELLA [Concomitant]
     Active Substance: MILNACIPRAN HYDROCHLORIDE
     Indication: BACK DISORDER
     Route: 065
  9. NORVASC [Suspect]
     Active Substance: AMLODIPINE BESYLATE
     Indication: PRODUCT USED FOR UNKNOWN INDICATION
     Route: 065
  10. FINASTERIDE. [Suspect]
     Active Substance: FINASTERIDE
     Indication: HYPERTENSION
     Route: 065

REACTIONS (5)
  - Hypertension [Not Recovered/Not Resolved]
  - Peripheral swelling [Recovered/Resolved]
  - Drug ineffective [Not Recovered/Not Resolved]
  - Blood pressure increased [Not Recovered/Not Resolved]
  - Condition aggravated [Not Recovered/Not Resolved]

NARRATIVE: CASE EVENT DATE: 201502
